FAERS Safety Report 25643873 (Version 1)
Quarter: 2025Q3

REPORT INFORMATION
  Report Type: Spontaneous
  Country: US (occurrence: US)
  Receive Date: 20250805
  Receipt Date: 20250805
  Transmission Date: 20251020
  Serious: Yes (Other)
  Sender: MYLAN
  Company Number: US-MYLANLABS-2025M1066188

PATIENT
  Age: 15 Year
  Sex: Male

DRUGS (4)
  1. VALACYCLOVIR [Suspect]
     Active Substance: VALACYCLOVIR HYDROCHLORIDE
     Indication: Varicella keratitis
     Dosage: 1 GRAM, TID
  2. DEXAMETHASONE [Suspect]
     Active Substance: DEXAMETHASONE
     Indication: Corneal scar
     Dosage: UNK, QID
  3. LOSARTAN [Suspect]
     Active Substance: LOSARTAN
     Indication: Corneal scar
     Dosage: 0.8 MG/ML, Q4H, SIX TIMES DAILY
  4. LOSARTAN [Suspect]
     Active Substance: LOSARTAN
     Indication: Varicella keratitis

REACTIONS (3)
  - Therapy non-responder [Unknown]
  - Off label use [Unknown]
  - Drug effective for unapproved indication [Unknown]
